FAERS Safety Report 12716989 (Version 1)
Quarter: 2016Q3

REPORT INFORMATION
  Report Type: Spontaneous
  Country: US (occurrence: US)
  Receive Date: 20160906
  Receipt Date: 20160906
  Transmission Date: 20161109
  Serious: Yes (Hospitalization)
  Sender: FDA-Public Use
  Company Number: US-TURING PHARMACEUTICALS-2016TNG00040

PATIENT
  Age: 35 Year
  Sex: Female

DRUGS (7)
  1. LISINOPRIL. [Concomitant]
     Active Substance: LISINOPRIL
  2. LAMVUDINE [Concomitant]
  3. NOVOLOG [Concomitant]
     Active Substance: INSULIN ASPART
  4. DARAPRIM [Suspect]
     Active Substance: PYRIMETHAMINE
     Indication: MALARIA
     Dosage: 3 TABLETS, 1X/DAY
     Route: 048
     Dates: start: 20160726
  5. ISENTRESS [Concomitant]
     Active Substance: RALTEGRAVIR POTASSIUM
  6. IBUPROFEN. [Concomitant]
     Active Substance: IBUPROFEN
  7. FUROSEMIDE. [Concomitant]
     Active Substance: FUROSEMIDE

REACTIONS (1)
  - Pneumonia [Unknown]

NARRATIVE: CASE EVENT DATE: 201608
